FAERS Safety Report 7138396-2 (Version None)
Quarter: 2010Q4

REPORT INFORMATION
  Report Type: 
  Country: None (occurrence: None)
  Receive Date: 20101202
  Receipt Date: 20101202
  Transmission Date: 20110411
  Serious: Yes (Hospitalization, Disabling)
  Sender: FDA-Public Use
  Company Number: None

PATIENT
  Age: 36 Year
  Sex: Female
  Weight: 54.4316 kg

DRUGS (1)
  1. CIPROFLOXACIN [Suspect]
     Indication: URINARY TRACT INFECTION
     Dosage: 2 TABLETS DAY 3
     Dates: start: 20100910, end: 20100912

REACTIONS (25)
  - ABDOMINAL DISCOMFORT [None]
  - ARTHRALGIA [None]
  - CONSTIPATION [None]
  - COORDINATION ABNORMAL [None]
  - DEPERSONALISATION [None]
  - DIZZINESS [None]
  - FAECES DISCOLOURED [None]
  - GASTRITIS [None]
  - HEADACHE [None]
  - HUNGER [None]
  - HYPERHIDROSIS [None]
  - HYPOGLYCAEMIA [None]
  - INSOMNIA [None]
  - JAUNDICE [None]
  - MEMORY IMPAIRMENT [None]
  - METABOLIC DISORDER [None]
  - MUSCLE ATROPHY [None]
  - PAIN [None]
  - PALPITATIONS [None]
  - PANIC ATTACK [None]
  - RESTLESSNESS [None]
  - TACHYCARDIA [None]
  - TENDON PAIN [None]
  - VERTIGO [None]
  - VISUAL IMPAIRMENT [None]
